FAERS Safety Report 19532606 (Version 1)
Quarter: 2021Q3

REPORT INFORMATION
  Report Type: Spontaneous
  Country: US (occurrence: US)
  Receive Date: 20210713
  Receipt Date: 20210713
  Transmission Date: 20211014
  Serious: Yes (Other)
  Sender: FDA-Public Use
  Company Number: US-SYNEX-T202103025

PATIENT
  Age: 57 Year
  Sex: Male

DRUGS (1)
  1. INOMAX [Suspect]
     Active Substance: NITRIC OXIDE
     Indication: RIGHT VENTRICULAR FAILURE
     Dosage: UNK (INHALATION)
     Route: 055

REACTIONS (5)
  - Product use issue [Unknown]
  - SARS-CoV-2 test positive [Unknown]
  - Product use in unapproved indication [Unknown]
  - Hypoxia [Unknown]
  - Hypercapnia [Unknown]
